FAERS Safety Report 9347004 (Version 2)
Quarter: 2013Q3

REPORT INFORMATION
  Report Type: Spontaneous
  Country: FR (occurrence: FR)
  Receive Date: 20130613
  Receipt Date: 20130723
  Transmission Date: 20140515
  Serious: Yes (Hospitalization)
  Sender: FDA-Public Use
  Company Number: FR-B.I. PHARMACEUTICALS,INC./RIDGEFIELD-2013-FF-01484FF

PATIENT
  Age: 88 Year
  Sex: Female
  Weight: 65 kg

DRUGS (13)
  1. PRADAXA [Suspect]
     Indication: ATRIAL FIBRILLATION
     Dosage: 220 MG
     Route: 048
     Dates: start: 201304, end: 201304
  2. ARICEPT [Concomitant]
     Indication: DEMENTIA ALZHEIMER^S TYPE
  3. SEROPLEX [Concomitant]
  4. LYRICA [Concomitant]
     Indication: ARTHRITIS
  5. LYRICA [Concomitant]
     Indication: NEURALGIA
  6. LEVOTHYROX [Concomitant]
  7. FORLAX [Concomitant]
  8. VESICARE [Concomitant]
  9. PRETERAX [Concomitant]
     Indication: HYPERTENSION
  10. HEXAQUINE [Concomitant]
  11. KLIPAL [Concomitant]
  12. LASILIX [Concomitant]
     Indication: CARDIAC FAILURE
  13. DIGOXINE [Concomitant]

REACTIONS (4)
  - Melaena [Recovered/Resolved]
  - General physical health deterioration [Recovered/Resolved]
  - Red blood cell count decreased [Recovered/Resolved]
  - Gastrointestinal haemorrhage [Recovered/Resolved]
